FAERS Safety Report 19168714 (Version 1)
Quarter: 2021Q2

REPORT INFORMATION
  Report Type: Spontaneous
  Country: DE (occurrence: DE)
  Receive Date: 20210422
  Receipt Date: 20210422
  Transmission Date: 20210717
  Serious: Yes (Hospitalization)
  Sender: FDA-Public Use
  Company Number: DE-VERTEX PHARMACEUTICALS-2021-005137

PATIENT
  Sex: Female

DRUGS (4)
  1. KAFTRIO [Suspect]
     Active Substance: ELEXACAFTOR\IVACAFTOR\TEZACAFTOR
     Dosage: UNKNOWN
     Route: 048
     Dates: start: 202102
  2. KAFTRIO [Suspect]
     Active Substance: ELEXACAFTOR\IVACAFTOR\TEZACAFTOR
     Indication: CYSTIC FIBROSIS
     Dosage: 2 TABS (IVACAFTOR/TEZACAFTOR/ELEXACAFTOR)
     Route: 048
     Dates: start: 20201215
  3. KALYDECO [Suspect]
     Active Substance: IVACAFTOR
     Indication: CYSTIC FIBROSIS
     Dosage: 1 TAB (IVACAFTOR)
     Route: 048
     Dates: start: 20201215
  4. KALYDECO [Suspect]
     Active Substance: IVACAFTOR
     Dosage: UNKNOWN
     Route: 048
     Dates: start: 202102

REACTIONS (2)
  - Sinusitis [Recovering/Resolving]
  - Paranasal sinus discomfort [Recovering/Resolving]

NARRATIVE: CASE EVENT DATE: 2021
